FAERS Safety Report 9219015 (Version 2)
Quarter: 2013Q2

REPORT INFORMATION
  Report Type: Spontaneous
  Country: JP (occurrence: JP)
  Receive Date: 20130409
  Receipt Date: 20130411
  Transmission Date: 20140414
  Serious: Yes (Other)
  Sender: FDA-Public Use
  Company Number: JP-BAYER-2013-043960

PATIENT
  Age: 84 Year
  Sex: Male

DRUGS (3)
  1. BAYASPIRIN [Suspect]
     Indication: CEREBRAL INFARCTION
     Dosage: UNK
     Route: 048
  2. TEGRETOL [Suspect]
     Indication: CEREBRAL INFARCTION
     Route: 048
  3. SELENICA-R [Suspect]
     Indication: CEREBRAL INFARCTION
     Route: 048

REACTIONS (3)
  - Drug reaction with eosinophilia and systemic symptoms [None]
  - Pyrexia [None]
  - Rash [None]
